FAERS Safety Report 16006101 (Version 2)
Quarter: 2019Q1

REPORT INFORMATION
  Report Type: Report from Study
  Country: None (occurrence: CH)
  Receive Date: 20190226
  Receipt Date: 20190307
  Transmission Date: 20190418
  Serious: Yes (Hospitalization)
  Sender: FDA-Public Use
  Company Number: CH-ABBVIE-19S-151-2679841-00

PATIENT
  Age: 81 Year
  Sex: Female

DRUGS (3)
  1. DUODOPA [Suspect]
     Active Substance: CARBIDOPA\LEVODOPA
     Indication: PARKINSON^S DISEASE
     Route: 050
     Dates: start: 20131119, end: 20180817
  2. DUODOPA [Suspect]
     Active Substance: CARBIDOPA\LEVODOPA
     Dosage: MD 3 ML CRD 3.4 ML/H CRN: 2.7 ML/H ED 0.4 ML 24H THERAPY
     Route: 050
     Dates: start: 20190206
  3. DUODOPA [Suspect]
     Active Substance: CARBIDOPA\LEVODOPA
     Dosage: MD 3 ML CRD  3.5 ML/H CRN: 2.7 ML/H ED 1.4 ML 24H THERAPY
     Route: 050
     Dates: start: 20180817, end: 20190206

REACTIONS (6)
  - Dyskinesia [Recovered/Resolved]
  - Akinesia [Unknown]
  - Emotional disorder [Unknown]
  - Restlessness [Recovered/Resolved]
  - Cognitive disorder [Unknown]
  - Social problem [Unknown]

NARRATIVE: CASE EVENT DATE: 20190301
